FAERS Safety Report 7205356-2 (Version None)
Quarter: 2010Q4

REPORT INFORMATION
  Report Type: 
  Country: None (occurrence: None)
  Receive Date: 20101231
  Receipt Date: 20101229
  Transmission Date: 20110411
  Serious: No
  Sender: FDA-Public Use
  Company Number: US-PFIZER INC-2010181558

PATIENT
  Sex: Male
  Weight: 95.2 kg

DRUGS (3)
  1. PRISTIQ [Suspect]
     Indication: DEPRESSION
     Dosage: UNK
     Dates: start: 20101223
  2. LISINOPRIL [Concomitant]
     Indication: HYPERTENSION
     Dosage: UNK
  3. TAMSULOSIN [Concomitant]
     Indication: MICTURITION DISORDER
     Dosage: UNK

REACTIONS (2)
  - FEELING ABNORMAL [None]
  - NAUSEA [None]
